FAERS Safety Report 13021421 (Version 1)
Quarter: 2016Q4

REPORT INFORMATION
  Report Type: Spontaneous
  Country: IT (occurrence: IT)
  Receive Date: 20161213
  Receipt Date: 20161213
  Transmission Date: 20170207
  Serious: Yes (Hospitalization)
  Sender: FDA-Public Use
  Company Number: IT-ACCORD-046276

PATIENT
  Age: 45 Year
  Sex: Male

DRUGS (6)
  1. ANAFRANIL [Suspect]
     Active Substance: CLOMIPRAMINE HYDROCHLORIDE
     Indication: DEPRESSION
     Dosage: 20 DF TOTAL
     Route: 048
     Dates: start: 20161020, end: 20161020
  2. BENTELAN [Suspect]
     Active Substance: BETAMETHASONE SODIUM PHOSPHATE
     Indication: INFLAMMATION
     Dosage: 10 MG TOTAL?STRENGTH: 1 MG?EFFERVESCENT TABLETS
     Route: 048
     Dates: start: 20161020, end: 20161020
  3. ESCITALOPRAM [Suspect]
     Active Substance: ESCITALOPRAM OXALATE
     Indication: DEPRESSION
     Dosage: 30 ML TOTAL
     Route: 048
     Dates: start: 20161020, end: 20161020
  4. LEVOXACIN - GLAXOSMITHKLINE S.P.A. [Suspect]
     Active Substance: LEVOFLOXACIN
     Indication: BACTERIAL INFECTION
     Dosage: 5 DF TOTAL
     Route: 048
     Dates: start: 20161020, end: 20161020
  5. LORTAAN - MSD ITALIA S.R.L. [Suspect]
     Active Substance: LOSARTAN POTASSIUM
     Indication: HYPERTENSION
     Dosage: 28 DF TOTAL
     Route: 048
     Dates: start: 20161020, end: 20161020
  6. ZOLPIDEM [Suspect]
     Active Substance: ZOLPIDEM\ZOLPIDEM TARTRATE
     Indication: ANXIETY
     Dosage: 30 ML TOTAL
     Route: 048
     Dates: start: 20161020, end: 20161020

REACTIONS (4)
  - Intentional product misuse [Unknown]
  - Intentional overdose [None]
  - Intentional self-injury [Unknown]
  - Sopor [Recovered/Resolved]

NARRATIVE: CASE EVENT DATE: 20161020
